FAERS Safety Report 4609378-7 (Version None)
Quarter: 2005Q1

REPORT INFORMATION
  Report Type: 
  Country: None (occurrence: None)
  Receive Date: 20050314
  Receipt Date: 20050311
  Transmission Date: 20050727
  Serious: Yes (Hospitalization)
  Sender: FDA-Public Use
  Company Number: J081-002-001903

PATIENT
  Age: 72 Year
  Sex: Female
  Weight: 59 kg

DRUGS (10)
  1. ARICEPT [Suspect]
     Indication: DEMENTIA ALZHEIMER'S TYPE
     Dosage: 3 MG, 1 IN 1 D, ORAL
     Route: 048
     Dates: start: 20050217, end: 20050308
  2. WARFARIN SODIUM [Concomitant]
  3. RENAGEL [Concomitant]
  4. CHOLEBINE (COLESTILAN) [Concomitant]
  5. GLIMICRON (GLICLAZIDE) [Concomitant]
  6. PRAVASTATIN [Concomitant]
  7. NU-LOTAN (LOSARTAN POTASSIUM) [Concomitant]
  8. AMOBAN (ZOPICLONE) [Concomitant]
  9. PURSENNID (SENNA LEAF) [Concomitant]
  10. DOPS (DROXIDOPA) [Concomitant]

REACTIONS (6)
  - CONDITION AGGRAVATED [None]
  - DEMENTIA [None]
  - DIALYSIS [None]
  - EXTRAPYRAMIDAL DISORDER [None]
  - HALLUCINATION [None]
  - TREMOR [None]
